FAERS Safety Report 25380678 (Version 1)
Quarter: 2025Q2

REPORT INFORMATION
  Report Type: Spontaneous
  Country: US (occurrence: US)
  Receive Date: 20250530
  Receipt Date: 20250530
  Transmission Date: 20250716
  Serious: No
  Sender: CIPLA
  Company Number: US-CIPLA LTD.-2024US04366

PATIENT

DRUGS (3)
  1. ALBUTEROL [Suspect]
     Active Substance: ALBUTEROL
     Indication: Asthma
     Route: 065
     Dates: start: 2021
  2. ALBUTEROL [Suspect]
     Active Substance: ALBUTEROL
     Indication: Hypersensitivity
     Dates: start: 20240417
  3. ALLEGRA [Concomitant]
     Active Substance: FEXOFENADINE HYDROCHLORIDE
     Indication: Hypersensitivity
     Dosage: 180 MILLIGRAM, QD (OTC)
     Route: 065

REACTIONS (4)
  - Wheezing [Unknown]
  - Incorrect dose administered by device [Unknown]
  - Intentional product use issue [Unknown]
  - Device delivery system issue [Unknown]

NARRATIVE: CASE EVENT DATE: 20240417
